FAERS Safety Report 5047689-4 (Version None)
Quarter: 2006Q2

REPORT INFORMATION
  Report Type: 
  Country: None (occurrence: None)
  Receive Date: 20060601
  Receipt Date: 20060202
  Transmission Date: 20061013
  Serious: No
  Sender: FDA-Public Use
  Company Number: US200602000730

PATIENT
  Age: 73 Year
  Sex: Female

DRUGS (4)
  1. CYMBALTA [Suspect]
     Indication: PAIN
     Dosage: 30 MG, DAILY (1/D)
     Dates: start: 20060201, end: 20060202
  2. MEMANTINE HYDROCHLORIDE (MEMANTINE HYDROCHLORIDE) [Concomitant]
  3. ARICEPT /JPN/(DONEPEZIL HYDROCHLORIDE) [Concomitant]
  4. ASPIRIN [Concomitant]

REACTIONS (1)
  - PERSONALITY CHANGE [None]
